FAERS Safety Report 10630618 (Version 2)
Quarter: 2014Q4

REPORT INFORMATION
  Report Type: Spontaneous
  Country: US (occurrence: US)
  Receive Date: 20141205
  Receipt Date: 20141205
  Transmission Date: 20150529
  Serious: No
  Sender: FDA-Public Use
  Company Number: US-BRISTOL-MYERS SQUIBB COMPANY-21465158

PATIENT
  Age: 71 Year
  Sex: Male
  Weight: 97.05 kg

DRUGS (3)
  1. LEVEMIR [Concomitant]
     Active Substance: INSULIN DETEMIR
     Indication: DIABETES MELLITUS
  2. BYETTA [Suspect]
     Active Substance: EXENATIDE
     Indication: DIABETES MELLITUS
     Dosage: DURATION OF THERAPY: 4-5 YEARS?ONGOING
     Route: 058
     Dates: start: 2005
  3. GLUCOPHAGE [Concomitant]
     Active Substance: METFORMIN HYDROCHLORIDE
     Indication: DIABETES MELLITUS

REACTIONS (10)
  - Overdose [Unknown]
  - Blood glucose increased [Unknown]
  - Vomiting [Unknown]
  - Diarrhoea [Unknown]
  - Weight increased [Unknown]
  - Drug dose omission [Unknown]
  - Blood glucose decreased [Unknown]
  - Product quality issue [Unknown]
  - Weight decreased [Unknown]
  - Nausea [Unknown]

NARRATIVE: CASE EVENT DATE: 20140928
